FAERS Safety Report 12846688 (Version 11)
Quarter: 2017Q1

REPORT INFORMATION
  Report Type: Spontaneous
  Country: US (occurrence: US)
  Receive Date: 20161014
  Receipt Date: 20170328
  Transmission Date: 20170428
  Serious: Yes (Other)
  Sender: FDA-Public Use
  Company Number: US-PFIZER INC-2016445286

PATIENT
  Age: 83 Year
  Sex: Female
  Weight: 72 kg

DRUGS (39)
  1. METOPROLOL TARTRATE. [Concomitant]
     Active Substance: METOPROLOL TARTRATE
     Dosage: 50 MG, EVERY DAY
     Route: 048
     Dates: start: 20111012
  2. LEVOTHYROXINE SODIUM. [Concomitant]
     Active Substance: LEVOTHYROXINE SODIUM
     Dosage: 50 UG, DAILY (ONE TABLET DAILY BEFORE BREAKFAST )
     Route: 048
     Dates: start: 20111012
  3. SENSIPAR [Concomitant]
     Active Substance: CINACALCET HYDROCHLORIDE
     Indication: BLOOD CALCIUM INCREASED
     Dosage: 30 MG, 2X/WEEK (ONE TWICE A WEEK)
     Route: 048
     Dates: start: 20160728
  4. LEVOTHYROXINE. [Concomitant]
     Active Substance: LEVOTHYROXINE
     Indication: THYROID DISORDER
     Dosage: 50 MG, DAILY, (BEFORE BREAKFAST)
     Dates: start: 1972
  5. ONDANSETRON [Concomitant]
     Active Substance: ONDANSETRON
     Indication: NAUSEA
     Dosage: 8 MG, AS NEEDED
     Dates: start: 201610
  6. POTASSIUM CHLORIDE. [Concomitant]
     Active Substance: POTASSIUM CHLORIDE
     Dosage: UNK, 2X/DAY, (TBCR AT BREAKFAST AND EVENING MEAL)
     Route: 048
  7. ALLOPURINOL. [Concomitant]
     Active Substance: ALLOPURINOL
     Dosage: 100 MG, DAILY, (WITH EVENING MEAL)
     Route: 048
     Dates: start: 20150527
  8. VITAMIN D3 [Concomitant]
     Active Substance: CHOLECALCIFEROL
     Indication: SUPPLEMENTATION THERAPY
     Dosage: 2000 IU, DAILY (ONE  DAILY)
     Route: 048
     Dates: start: 20130311
  9. MIRALAX [Concomitant]
     Active Substance: POLYETHYLENE GLYCOL 3350
     Dosage: 1 TEASPOON IN COFFEE AT BREAKFAST
     Dates: start: 20160602
  10. ACIDOPHILUS [Concomitant]
     Active Substance: LACTOBACILLUS ACIDOPHILUS
     Dosage: UNK
  11. LASIX [Concomitant]
     Active Substance: FUROSEMIDE
     Dosage: UNK
  12. MOUTH WASH [Concomitant]
     Dosage: UNK
     Dates: start: 20161018
  13. CLONAZEPAM. [Concomitant]
     Active Substance: CLONAZEPAM
     Indication: SLEEP DISORDER
     Dosage: 1 MG, AS NEEDED, (AT BEDTIME )
     Dates: start: 201011
  14. CARDIZEM CD [Concomitant]
     Active Substance: DILTIAZEM HYDROCHLORIDE
     Dosage: 180 MG, 1X/DAY
     Route: 048
     Dates: start: 20111012
  15. METOPROLOL SUCCINATE. [Concomitant]
     Active Substance: METOPROLOL SUCCINATE
     Indication: HEART RATE IRREGULAR
     Dosage: 50 MG, 2X/DAY
  16. SUTENT [Suspect]
     Active Substance: SUNITINIB MALATE
     Indication: RENAL CELL CARCINOMA
     Dosage: 37.5 MG, CYCLIC (DAY 1-28 Q 42 DAYS)
     Route: 048
     Dates: start: 20160914
  17. FUROSEMIDE. [Concomitant]
     Active Substance: FUROSEMIDE
     Indication: JOINT SWELLING
     Dosage: 40 MG, DAILY (20 MG TABLET TWO DAILY AT BREAKFAST)
     Dates: start: 20141204
  18. DITROPAN [Concomitant]
     Active Substance: OXYBUTYNIN CHLORIDE
     Dosage: 5 MG, 2X/DAY
     Route: 048
     Dates: start: 20130311
  19. ACIDOPHILUS PROBIOTIC [Concomitant]
     Dosage: 1 DF, UNK (1 MID MORNING, 1 MID AFTERNOON)
     Dates: start: 20130311
  20. HYDROCODONE/ACETAMINOPHEN [Concomitant]
     Active Substance: ACETAMINOPHEN\HYDROCODONE
     Indication: PAIN
     Dosage: UNK UNK, AS NEEDED( HYDROCODONE:5MG; ACETAMINOPHEN: 325MG)
     Dates: start: 20130311
  21. IMODIUM [Concomitant]
     Active Substance: LOPERAMIDE HYDROCHLORIDE
     Dosage: UNK
  22. METOPROLOL SUCCINATE. [Concomitant]
     Active Substance: METOPROLOL SUCCINATE
     Dosage: 50MG,DAILY,(IN THE EVENING)
     Dates: start: 201407
  23. DILTIAZEM. [Concomitant]
     Active Substance: DILTIAZEM
     Indication: HEART RATE IRREGULAR
     Dosage: 180 MG, DAILY, (AT BREAKFAST)
     Dates: start: 201407
  24. ASPIRIN. [Concomitant]
     Active Substance: ASPIRIN
     Indication: ANTICOAGULANT THERAPY
     Dosage: 81 MG, DAILY(ONE TABLET DAILING IN AM)
     Route: 048
     Dates: start: 20111012
  25. POTASSIUM CHLORIDE. [Concomitant]
     Active Substance: POTASSIUM CHLORIDE
     Indication: BLOOD POTASSIUM DECREASED
     Dosage: 20 MEQ, 2X/DAY (ONE ORAL TWICE A DAY)
     Route: 048
     Dates: start: 20141204
  26. ASPIRIN. [Concomitant]
     Active Substance: ASPIRIN
     Dosage: 81 MG, 1X/DAY, (AT BREAKFAST)
     Route: 048
  27. PRILOSEC [Concomitant]
     Active Substance: OMEPRAZOLE MAGNESIUM
     Dosage: 20 MG, DAILY(ONE TABLET DAILY)
     Route: 048
     Dates: start: 20131113
  28. CIPRO [Concomitant]
     Active Substance: CIPROFLOXACIN HYDROCHLORIDE
     Dosage: UNK
  29. METOPROLOL. [Concomitant]
     Active Substance: METOPROLOL
     Dosage: UNK
  30. BABY ASPIRIN [Concomitant]
     Active Substance: ASPIRIN
     Dosage: UNK
  31. OMEPRAZOLE. [Concomitant]
     Active Substance: OMEPRAZOLE
     Indication: GASTROOESOPHAGEAL REFLUX DISEASE
     Dosage: 20 MG, DAILY, (AT BREAKFAST)
  32. SUTENT [Suspect]
     Active Substance: SUNITINIB MALATE
     Indication: RENAL CELL CARCINOMA
     Dosage: 25 MG, CYCLIC (28 DAYS ON AND 14 DAYS OFF)
     Route: 048
     Dates: start: 20160930, end: 20161018
  33. SUTENT [Suspect]
     Active Substance: SUNITINIB MALATE
     Indication: METASTASES TO LUNG
     Dosage: 37.5 MG, 1X/DAY (ONCE A DAY FOR 18 DAYS)
     Route: 048
     Dates: start: 20161009, end: 20161026
  34. SUTENT [Suspect]
     Active Substance: SUNITINIB MALATE
     Indication: PARATHYROID TUMOUR MALIGNANT
     Dosage: 25 MG, CYCLIC (28 DAYS ON/14 DAYS OFF)
     Route: 048
     Dates: start: 20161113, end: 20170122
  35. SUTENT [Suspect]
     Active Substance: SUNITINIB MALATE
     Indication: METASTASES TO LYMPH NODES
  36. ALLOPURINOL. [Concomitant]
     Active Substance: ALLOPURINOL
     Indication: GOUT
     Dosage: 100 MG, DAILY
     Route: 048
     Dates: start: 20150424
  37. SENSIPAR [Concomitant]
     Active Substance: CINACALCET HYDROCHLORIDE
     Dosage: 30 MG, 2X/WEEK, (ON MONDAY AND THURSDAY)
     Route: 048
     Dates: start: 2015
  38. ZOFRAN [Concomitant]
     Active Substance: ONDANSETRON HYDROCHLORIDE
     Dosage: UNK
  39. OXYBUTIN [Concomitant]
     Active Substance: OXYBUTYNIN
     Dosage: 5 MG, 2X/DAY (AT BREAKFAST AND SUPPER)

REACTIONS (41)
  - Contusion [Recovering/Resolving]
  - Sneezing [Unknown]
  - Blood pressure increased [Unknown]
  - Dry mouth [Not Recovered/Not Resolved]
  - Chills [Not Recovered/Not Resolved]
  - Tongue dry [Unknown]
  - Dry skin [Not Recovered/Not Resolved]
  - Skin fissures [Not Recovered/Not Resolved]
  - Rash [Unknown]
  - Constipation [Recovering/Resolving]
  - Fall [Unknown]
  - Erythema [Unknown]
  - Joint lock [Unknown]
  - Asthenia [Not Recovered/Not Resolved]
  - Malaise [Unknown]
  - Pain in extremity [Recovering/Resolving]
  - Fatigue [Unknown]
  - Chronic obstructive pulmonary disease [Unknown]
  - Feeling abnormal [Unknown]
  - Oral pain [Recovered/Resolved]
  - Dysgeusia [Unknown]
  - Decreased appetite [Unknown]
  - Yellow skin [Recovered/Resolved]
  - Platelet count decreased [Recovering/Resolving]
  - Muscle spasms [Unknown]
  - Glossodynia [Unknown]
  - Urinary tract infection [Unknown]
  - Skin exfoliation [Unknown]
  - Diarrhoea [Unknown]
  - Tremor [Recovering/Resolving]
  - Alopecia [Not Recovered/Not Resolved]
  - Haematochezia [Unknown]
  - Nausea [Unknown]
  - Neoplasm progression [Not Recovered/Not Resolved]
  - Dehydration [Recovering/Resolving]
  - Pain [Unknown]
  - Pruritus [Not Recovered/Not Resolved]
  - Ageusia [Unknown]
  - Swelling [Unknown]
  - Skin burning sensation [Not Recovered/Not Resolved]
  - Onychoclasis [Unknown]

NARRATIVE: CASE EVENT DATE: 201610
